FAERS Safety Report 12036985 (Version 1)
Quarter: 2016Q1

REPORT INFORMATION
  Report Type: Spontaneous
  Country: US (occurrence: None)
  Receive Date: 20160205
  Receipt Date: 20160205
  Transmission Date: 20160526
  Serious: Yes (Other)
  Sender: FDA-Public Use
  Company Number: None

PATIENT
  Age: 62 Year

DRUGS (6)
  1. CYMBALTA [Suspect]
     Active Substance: DULOXETINE HYDROCHLORIDE
     Indication: DEPRESSION
     Dosage: 1 PER DAY
     Route: 048
     Dates: start: 20160115, end: 20160204
  2. SIMVASTATIN. [Concomitant]
     Active Substance: SIMVASTATIN
  3. TRAMADOL. [Concomitant]
     Active Substance: TRAMADOL
  4. ACYCLOVIR. [Concomitant]
     Active Substance: ACYCLOVIR
  5. MOTRIN [Concomitant]
     Active Substance: IBUPROFEN
  6. AMLODIPINE [Concomitant]
     Active Substance: AMLODIPINE BESYLATE

REACTIONS (7)
  - Abdominal pain upper [None]
  - Somnolence [None]
  - Tremor [None]
  - Constipation [None]
  - Confusional state [None]
  - Hyperhidrosis [None]
  - Hypophagia [None]

NARRATIVE: CASE EVENT DATE: 20160203
